FAERS Safety Report 5505297-2 (Version None)
Quarter: 2007Q4

REPORT INFORMATION
  Report Type: 
  Country: None (occurrence: None)
  Receive Date: 20071102
  Receipt Date: 20071025
  Transmission Date: 20080405
  Serious: Yes (Hospitalization, Other)
  Sender: FDA-Public Use
  Company Number: FR-ROCHE-523554

PATIENT
  Age: 48 Year
  Sex: Female

DRUGS (5)
  1. BONIVA [Suspect]
     Indication: OSTEOPOROSIS
     Route: 048
     Dates: start: 20070929, end: 20070929
  2. SKENAN [Concomitant]
     Indication: FIBROMYALGIA
     Route: 048
  3. SKENAN [Concomitant]
     Dosage: DOSAGE DECREASED
     Route: 048
  4. SKENAN [Concomitant]
     Dosage: 20 MG IN THE MORNING AND 20 MG IN THE EVENING
     Route: 048
  5. DEROXAT [Concomitant]
     Indication: DEPRESSION
     Route: 048

REACTIONS (8)
  - ARTHRALGIA [None]
  - CHEST DISCOMFORT [None]
  - DYSPNOEA [None]
  - FIBROMYALGIA [None]
  - INFLUENZA LIKE ILLNESS [None]
  - NAUSEA [None]
  - PSEUDOPARALYSIS [None]
  - PYREXIA [None]
